FAERS Safety Report 25452894 (Version 1)
Quarter: 2025Q2

REPORT INFORMATION
  Report Type: Spontaneous
  Country: US (occurrence: US)
  Receive Date: 20250618
  Receipt Date: 20250618
  Transmission Date: 20250717
  Serious: Yes (Hospitalization)
  Sender: ELI LILLY AND COMPANY
  Company Number: US-ELI_LILLY_AND_COMPANY-US202506012673

PATIENT
  Age: 75 Year

DRUGS (1)
  1. GEMZAR [Suspect]
     Active Substance: GEMCITABINE HYDROCHLORIDE
     Indication: Breast cancer metastatic
     Route: 041
     Dates: start: 20250329

REACTIONS (4)
  - Fall [Recovering/Resolving]
  - Myopathy [Recovering/Resolving]
  - Hypersomnia [Recovering/Resolving]
  - Mobility decreased [Unknown]
